FAERS Safety Report 12337773 (Version 4)
Quarter: 2016Q3

REPORT INFORMATION
  Report Type: Report from Study
  Country: US (occurrence: US)
  Receive Date: 20160505
  Receipt Date: 20160715
  Transmission Date: 20161109
  Serious: Yes (Other)
  Sender: FDA-Public Use
  Company Number: US-AMGEN-USASL2016055540

PATIENT
  Age: 49 Year
  Sex: Female

DRUGS (1)
  1. ENBREL [Suspect]
     Active Substance: ETANERCEPT
     Indication: RHEUMATOID ARTHRITIS
     Dosage: 50 MG, QWK
     Route: 065
     Dates: start: 20160328

REACTIONS (9)
  - Drug dose omission [Unknown]
  - Peripheral swelling [Unknown]
  - Computerised tomogram [Unknown]
  - Biopsy lung abnormal [Unknown]
  - Pulmonary mass [Unknown]
  - Arthritis [Unknown]
  - Pyrexia [Unknown]
  - Device malfunction [Unknown]
  - Haemoptysis [Unknown]

NARRATIVE: CASE EVENT DATE: 2016
